FAERS Safety Report 10076536 (Version 2)
Quarter: 2014Q2

REPORT INFORMATION
  Report Type: Spontaneous
  Country: US (occurrence: US)
  Receive Date: 20140414
  Receipt Date: 20140501
  Transmission Date: 20141212
  Serious: No
  Sender: FDA-Public Use
  Company Number: US-PFIZER INC-2014102406

PATIENT
  Sex: Male

DRUGS (3)
  1. LYRICA [Suspect]
     Indication: LIMB DISCOMFORT
     Dosage: UNK
  2. VICTOSA [Interacting]
     Dosage: UNK, SHOT IN THE MORNING
  3. LISINOPRIL [Interacting]
     Dosage: UNK

REACTIONS (3)
  - Drug interaction [Unknown]
  - Local swelling [Unknown]
  - Pain in extremity [Unknown]
